FAERS Safety Report 7708142-X (Version None)
Quarter: 2011Q3

REPORT INFORMATION
  Report Type: 
  Country: None (occurrence: None)
  Receive Date: 20110825
  Receipt Date: 20110817
  Transmission Date: 20111222
  Serious: No
  Sender: FDA-Public Use
  Company Number: US-BIOGENIDEC-2011BI001986

PATIENT
  Age: 49 Year
  Sex: Female

DRUGS (2)
  1. AMPYRA [Concomitant]
     Dates: start: 20100101
  2. TYSABRI [Suspect]
     Indication: MULTIPLE SCLEROSIS
     Route: 042
     Dates: start: 20091027

REACTIONS (5)
  - GAIT DISTURBANCE [None]
  - ASTHENIA [None]
  - DRUG INEFFECTIVE [None]
  - FALL [None]
  - MUSCULAR WEAKNESS [None]
